FAERS Safety Report 21889522 (Version 2)
Quarter: 2023Q2

REPORT INFORMATION
  Report Type: Spontaneous
  Country: CA (occurrence: CA)
  Receive Date: 20230120
  Receipt Date: 20230420
  Transmission Date: 20230722
  Serious: Yes (Other)
  Sender: FDA-Public Use
  Company Number: None

PATIENT
  Age: 37 Year
  Sex: Female
  Weight: 65 kg

DRUGS (23)
  1. HUMIRA [Suspect]
     Active Substance: ADALIMUMAB
     Indication: Product used for unknown indication
     Route: 058
     Dates: end: 2020
  2. INFLECTRA [Suspect]
     Active Substance: INFLIXIMAB-DYYB
     Indication: Crohn^s disease
     Dosage: 10 MG/KG, EVERY 6 WEEKS?LAST ADMIN DATE- 2022
     Route: 042
     Dates: start: 20221128
  3. INFLECTRA [Suspect]
     Active Substance: INFLIXIMAB-DYYB
     Indication: Crohn^s disease
     Dosage: 5 MG/KG Q 0, 2, 6 WEEKS THEN EVERY 8 WEEKS?LAST ADMIN DATE-2020
     Route: 042
     Dates: start: 20200716
  4. INFLECTRA [Suspect]
     Active Substance: INFLIXIMAB-DYYB
     Indication: Crohn^s disease
     Dosage: 5 MG/KG Q 0, 2, 6 WEEKS THEN EVERY 8 WEEKS?LAST ADMIN DATE -2020
     Route: 042
     Dates: start: 20200813
  5. INFLECTRA [Suspect]
     Active Substance: INFLIXIMAB-DYYB
     Indication: Crohn^s disease
     Dosage: 10 MG/KG, EVERY 6 WEEKS?LAST ADMIN DATE-2022
     Route: 042
     Dates: start: 20221014
  6. INFLECTRA [Suspect]
     Active Substance: INFLIXIMAB-DYYB
     Indication: Crohn^s disease
     Dosage: 5 MG/KG AT 0, 2, 6,THEN EVERY 8 WEEKS
     Route: 042
     Dates: start: 20201202
  7. INFLECTRA [Suspect]
     Active Substance: INFLIXIMAB-DYYB
     Indication: Crohn^s disease
     Route: 042
     Dates: start: 20230403
  8. INFLECTRA [Suspect]
     Active Substance: INFLIXIMAB-DYYB
     Indication: Crohn^s disease
     Dosage: 5 MG/KG AT 0, 2, 6,THEN EVERY 8 WEEKS?LAST ADMIN DATE -2021
     Route: 042
     Dates: start: 20210715
  9. INFLECTRA [Suspect]
     Active Substance: INFLIXIMAB-DYYB
     Indication: Crohn^s disease
     Dosage: 10MG/KG EVERY 5 WEEK?LAST ADMIN DATE- 2022
     Route: 042
     Dates: start: 20220418
  10. INFLECTRA [Suspect]
     Active Substance: INFLIXIMAB-DYYB
     Indication: Crohn^s disease
     Dosage: 5 MG/KG Q 0, 2, 6 WEEKS THEN EVERY 8 WEEKS?LAST ADMIN DATE- JUL 2020
     Route: 042
     Dates: start: 20200702
  11. INFLECTRA [Suspect]
     Active Substance: INFLIXIMAB-DYYB
     Indication: Crohn^s disease
     Dosage: 5 MG/KG AT 0, 2, 6,THEN EVERY 8 WEEKS?LAST ADMIN DATE-2020
     Route: 042
     Dates: start: 20201007
  12. INFLECTRA [Suspect]
     Active Substance: INFLIXIMAB-DYYB
     Indication: Crohn^s disease
     Dosage: 5 MG/KG AT 0, 2, 6,THEN EVERY 8 WEEKS?LAST ADMIN DATE-2021
     Route: 042
     Dates: start: 20210127
  13. INFLECTRA [Suspect]
     Active Substance: INFLIXIMAB-DYYB
     Indication: Crohn^s disease
     Dosage: 5 MG/KG AT 0, 2, 6,THEN EVERY 8 WEEKS?LAST ADMIN DATE-2021
     Route: 042
     Dates: start: 20210322
  14. INFLECTRA [Suspect]
     Active Substance: INFLIXIMAB-DYYB
     Indication: Crohn^s disease
     Dosage: 10MG/KG EVERY 5 WEEK?LAST ADMIN DATE- 2022
     Route: 042
     Dates: start: 20220520
  15. INFLECTRA [Suspect]
     Active Substance: INFLIXIMAB-DYYB
     Indication: Crohn^s disease
     Dosage: 10MG/KG  EVERY 7 WEEK?LAST ADMIN DATE- 2021
     Route: 042
     Dates: start: 20210908
  16. INFLECTRA [Suspect]
     Active Substance: INFLIXIMAB-DYYB
     Indication: Crohn^s disease
     Dosage: 10MG/KG  EVERY 7 WEEK?LAST ADMIN DATE- 2022
     Route: 042
     Dates: start: 20220106
  17. INFLECTRA [Suspect]
     Active Substance: INFLIXIMAB-DYYB
     Indication: Crohn^s disease
     Dosage: 10MG/KG EVERY 6 WEEK?LAST ADMIN DATE- 2022
     Route: 042
     Dates: start: 20220804
  18. INFLECTRA [Suspect]
     Active Substance: INFLIXIMAB-DYYB
     Indication: Crohn^s disease
     Dosage: 10MG/KG  EVERY 7 WEEK?LAST ADMIN DATE- 2021
     Route: 042
     Dates: start: 20211027
  19. INFLECTRA [Suspect]
     Active Substance: INFLIXIMAB-DYYB
     Indication: Crohn^s disease
     Dosage: 10MG/KG EVERY 6 WEEK?LAST ADMIN DATE- 2023
     Route: 042
     Dates: start: 20230109
  20. INFLECTRA [Suspect]
     Active Substance: INFLIXIMAB-DYYB
     Indication: Crohn^s disease
     Dosage: 10MG/KG EVERY 5 WEEK?LAST ADMIN DATE- 2022
     Route: 042
     Dates: start: 20220627
  21. INFLECTRA [Suspect]
     Active Substance: INFLIXIMAB-DYYB
     Indication: Crohn^s disease
     Dosage: 10MG/KG EVERY 6 WEEK?LAST ADMIN DATE- 2022
     Route: 042
     Dates: start: 20220908
  22. INFLECTRA [Suspect]
     Active Substance: INFLIXIMAB-DYYB
     Indication: Crohn^s disease
     Dosage: 10MG/KG EVERY 6 WEEK?LAST ADMIN DATE- 2023
     Route: 042
     Dates: start: 20230220
  23. PREDNISONE [Concomitant]
     Active Substance: PREDNISONE
     Indication: Product used for unknown indication
     Route: 048

REACTIONS (27)
  - Condition aggravated [Unknown]
  - Arthralgia [Unknown]
  - Palpitations [Unknown]
  - General physical health deterioration [Unknown]
  - Heart rate decreased [Unknown]
  - Drug hypersensitivity [Unknown]
  - Abdominal pain [Unknown]
  - Body temperature increased [Unknown]
  - Diarrhoea [Unknown]
  - Pruritus [Unknown]
  - Faeces soft [Unknown]
  - Drug level above therapeutic [Unknown]
  - Mobility decreased [Unknown]
  - Hypoaesthesia [Unknown]
  - Alopecia [Unknown]
  - Off label use [Unknown]
  - Erythema [Unknown]
  - Nasopharyngitis [Unknown]
  - Amnesia [Unknown]
  - Maternal exposure during pregnancy [Unknown]
  - Paraesthesia [Not Recovered/Not Resolved]
  - Dermal cyst [Unknown]
  - COVID-19 [Recovered/Resolved]
  - Weight fluctuation [Unknown]
  - Rash [Unknown]
  - Acne [Unknown]
  - Dyspnoea [Unknown]

NARRATIVE: CASE EVENT DATE: 20201007
